FAERS Safety Report 4913898-5 (Version None)
Quarter: 2006Q1

REPORT INFORMATION
  Report Type: 
  Country: None (occurrence: None)
  Receive Date: 20060216
  Receipt Date: 20051004
  Transmission Date: 20060701
  Serious: Yes (Hospitalization)
  Sender: FDA-Public Use
  Company Number: US-MERCK-0510USA03348

PATIENT
  Age: 61 Year
  Sex: Male
  Weight: 89 kg

DRUGS (22)
  1. VIOXX [Suspect]
     Indication: ARTHRITIS
     Route: 048
     Dates: start: 20000219, end: 20040930
  2. ACIPHEX [Concomitant]
     Indication: GASTROOESOPHAGEAL REFLUX DISEASE
     Route: 065
     Dates: start: 20010827, end: 20030303
  3. ALTACE [Concomitant]
     Route: 065
     Dates: start: 20011228, end: 20030203
  4. ASPIRIN [Concomitant]
     Route: 048
     Dates: start: 19990118
  5. ASPIRIN [Concomitant]
     Route: 048
     Dates: start: 20010719
  6. ASPIRIN [Concomitant]
     Route: 048
     Dates: start: 20011220
  7. BECONASE [Concomitant]
     Indication: HYPERSENSITIVITY
     Route: 065
     Dates: start: 20010803, end: 20021017
  8. BETAMETHASONE DIPROPIONATE [Concomitant]
     Indication: SKIN IRRITATION
     Route: 065
     Dates: start: 20000504, end: 20030303
  9. CIMETIDINE [Concomitant]
     Indication: GASTRIC DISORDER
     Route: 065
     Dates: start: 20000104, end: 20010803
  10. ACETAMINOPHEN AND HYDROCODONE BITARTRATE [Concomitant]
     Indication: PAIN
     Route: 065
     Dates: start: 20000219
  11. IBUPROFEN [Concomitant]
     Indication: ANALGESIC EFFECT
     Route: 065
     Dates: start: 20000104, end: 20010803
  12. LEVAQUIN [Concomitant]
     Indication: BACTERIAL INFECTION
     Route: 065
     Dates: start: 20011228
  13. LEVAQUIN [Concomitant]
     Route: 065
     Dates: start: 20041122
  14. METOPROLOL [Concomitant]
     Route: 065
     Dates: start: 20011228
  15. NITROGLYCERIN [Concomitant]
     Indication: ANGINA PECTORIS
     Route: 065
     Dates: start: 20000104, end: 20020104
  16. NITROLINGUAL [Concomitant]
     Indication: ANGINA PECTORIS
     Route: 065
     Dates: start: 20020124, end: 20041130
  17. NITROSTAT [Concomitant]
     Indication: ANGINA PECTORIS
     Route: 065
     Dates: start: 20001019
  18. PLAVIX [Concomitant]
     Indication: ANTICOAGULANT THERAPY
     Route: 065
     Dates: start: 20011228
  19. PROTONIX [Concomitant]
     Indication: GASTROOESOPHAGEAL REFLUX DISEASE
     Route: 065
     Dates: start: 20040707, end: 20050404
  20. TOPROL-XL [Concomitant]
     Route: 065
     Dates: start: 20020330, end: 20050307
  21. VANCENASE [Concomitant]
     Indication: HYPERSENSITIVITY
     Route: 065
     Dates: start: 20000403, end: 20010305
  22. ZOCOR [Concomitant]
     Indication: BLOOD CHOLESTEROL INCREASED
     Route: 048
     Dates: start: 20000104

REACTIONS (13)
  - ATRIOVENTRICULAR BLOCK [None]
  - CARDIAC ARREST [None]
  - CATHETER RELATED INFECTION [None]
  - DRUG INEFFECTIVE [None]
  - HEART INJURY [None]
  - KLEBSIELLA INFECTION [None]
  - MYOCARDIAL INFARCTION [None]
  - POOR QUALITY DRUG ADMINISTERED [None]
  - RHEUMATOID ARTHRITIS [None]
  - SPUTUM CULTURE POSITIVE [None]
  - STAPHYLOCOCCAL INFECTION [None]
  - VENTRICULAR FIBRILLATION [None]
  - VENTRICULAR HYPERTROPHY [None]
